FAERS Safety Report 23248960 (Version 1)
Quarter: 2023Q4

REPORT INFORMATION
  Report Type: Spontaneous
  Country: PH (occurrence: PH)
  Receive Date: 20231201
  Receipt Date: 20231201
  Transmission Date: 20240109
  Serious: Yes (Hospitalization, Other)
  Sender: FDA-Public Use
  Company Number: PH-BoehringerIngelheim-2023-BI-267612

PATIENT
  Age: 58 Year
  Sex: Male

DRUGS (2)
  1. OFEV [Suspect]
     Active Substance: NINTEDANIB
     Indication: Interstitial lung disease
     Route: 048
     Dates: start: 20230925, end: 20231017
  2. OFEV [Suspect]
     Active Substance: NINTEDANIB
     Dosage: OFEV WAS REINTRODUCED, WITH REGIMEN OF 150 MG ONCE A DAY.
     Dates: start: 20231119, end: 20231123

REACTIONS (10)
  - Alanine aminotransferase increased [Recovered/Resolved]
  - Oxygen saturation decreased [Recovering/Resolving]
  - Pneumonia [Recovered/Resolved]
  - Asthenia [Recovering/Resolving]
  - Decreased appetite [Recovering/Resolving]
  - Skin discolouration [Recovering/Resolving]
  - Decreased appetite [Recovered/Resolved]
  - Oxygen saturation decreased [Recovered/Resolved]
  - Asthenia [Recovered/Resolved]
  - Hypoaesthesia [Recovered/Resolved]

NARRATIVE: CASE EVENT DATE: 20231016
